FAERS Safety Report 7599684-9 (Version None)
Quarter: 2011Q3

REPORT INFORMATION
  Report Type: 
  Country: None (occurrence: None)
  Receive Date: 20110711
  Receipt Date: 20110627
  Transmission Date: 20111222
  Serious: Yes (Hospitalization, Other)
  Sender: FDA-Public Use
  Company Number: CA-ELI_LILLY_AND_COMPANY-CA201106007526

PATIENT
  Sex: Male

DRUGS (23)
  1. ZYPREXA [Suspect]
     Dosage: 15 MG, QD
  2. CLOZAPINE [Concomitant]
  3. ZIPRASIDONE HYDROCHLORIDE [Concomitant]
  4. ZYPREXA [Suspect]
     Dosage: 10 MG, QD
  5. SERAX [Concomitant]
  6. PROCYCLIDINE HYDROCHLORIDE 2MG TAB [Concomitant]
  7. BUPROPION HCL [Concomitant]
  8. PERIDOL [Concomitant]
  9. ZYPREXA [Suspect]
     Dosage: 5 MG, QD
  10. RISPERDAL [Concomitant]
  11. PERPHENAZINE [Concomitant]
  12. ZYPREXA [Suspect]
     Indication: SCHIZOPHRENIA, PARANOID TYPE
     Dosage: 5 MG, BID
  13. ZYPREXA [Suspect]
     Dosage: 20 MG, QD
  14. ZYPREXA [Suspect]
     Dosage: 2.5 MG, QD
  15. ATIVAN [Concomitant]
  16. ORAP [Concomitant]
  17. PANTOLOC ^BYK MADAUS^ [Concomitant]
  18. EFFEXOR [Concomitant]
  19. DALMANE [Concomitant]
  20. SYNTHROID [Concomitant]
  21. SEROQUEL [Concomitant]
  22. LUVOX [Concomitant]
  23. GRAVOL TAB [Concomitant]

REACTIONS (23)
  - TACHYPNOEA [None]
  - PNEUMONIA STAPHYLOCOCCAL [None]
  - DELIRIUM [None]
  - PLEURAL EFFUSION [None]
  - SLEEP APNOEA SYNDROME [None]
  - RENAL FAILURE CHRONIC [None]
  - DIABETES MELLITUS [None]
  - HYPOAESTHESIA [None]
  - HAEMATURIA [None]
  - URETHRAL INJURY [None]
  - ACUTE RESPIRATORY DISTRESS SYNDROME [None]
  - METABOLIC SYNDROME [None]
  - HEPATIC STEATOSIS [None]
  - HYPOXIA [None]
  - PANCREATITIS ACUTE [None]
  - PULMONARY EMBOLISM [None]
  - PANCREATITIS [None]
  - TOXICITY TO VARIOUS AGENTS [None]
  - CLOSTRIDIAL INFECTION [None]
  - HEPATOMEGALY [None]
  - SINUS TACHYCARDIA [None]
  - DYSLIPIDAEMIA [None]
  - WEIGHT INCREASED [None]
